FAERS Safety Report 4314720-0 (Version None)
Quarter: 2004Q1

REPORT INFORMATION
  Report Type: 
  Country: None (occurrence: None)
  Receive Date: 20040308
  Receipt Date: 20040225
  Transmission Date: 20041129
  Serious: Yes (Life-Threatening, Hospitalization, Other)
  Sender: FDA-Public Use
  Company Number: 2004199206FR

PATIENT
  Age: 66 Year
  Sex: Male
  Weight: 92 kg

DRUGS (7)
  1. CELEBREX [Suspect]
     Indication: ARTHRALGIA
     Dosage: 200 MG, QD, ORAL
     Route: 048
  2. SAVARINE(CHLOROQUINE, PROGUANIL HYDROCHLORIDE) TABLET [Suspect]
     Indication: MALARIA
     Dosage: 200/100 MG QD IN 1 INTAKE, ORAL
     Route: 048
     Dates: start: 20040122, end: 20040127
  3. FLUDEX TABLET [Concomitant]
  4. BI-TILDIEM TABLET [Concomitant]
  5. APROVEL (IRBESARTAN) TABLET [Concomitant]
  6. GLUCOPHAGE [Concomitant]
  7. FENOFIBRATE TABLET [Concomitant]

REACTIONS (5)
  - ABDOMINAL PAIN [None]
  - DRUG INTERACTION [None]
  - MARKEDLY REDUCED DIETARY INTAKE [None]
  - NAUSEA [None]
  - VOMITING [None]
